FAERS Safety Report 15028639 (Version 1)
Quarter: 2018Q2

REPORT INFORMATION
  Report Type: Spontaneous
  Country: NL (occurrence: NL)
  Receive Date: 20180619
  Receipt Date: 20180619
  Transmission Date: 20180711
  Serious: Yes (Other)
  Sender: FDA-Public Use
  Company Number: NL-TEVA-2018-NL-911599

PATIENT
  Sex: Female

DRUGS (5)
  1. OXAZEPAM TEVA 10 MG, TABLETTEN [Suspect]
     Active Substance: OXAZEPAM
     Indication: PRODUCT USED FOR UNKNOWN INDICATION
     Dosage: 0.75 PART OF A TABLET
     Route: 065
  2. LEVOTHYROXINENATRIUM TEVA 75 MICROGRAM, TABLETTEN [Suspect]
     Active Substance: LEVOTHYROXINE SODIUM
     Indication: PRODUCT USED FOR UNKNOWN INDICATION
     Dosage: 75 MICROGRAM DAILY;
     Route: 065
  3. MAGNESIUMHYDROXIDE TEVA 724 MG, KAUWTABLETTEN [Suspect]
     Active Substance: MAGNESIUM HYDROXIDE
     Indication: PRODUCT USED FOR UNKNOWN INDICATION
     Dosage: 0.75 PART OF A TABLET
     Route: 065
  4. SODIUM CHLORIDE. [Suspect]
     Active Substance: SODIUM CHLORIDE
     Indication: PRODUCT USED FOR UNKNOWN INDICATION
     Route: 065
  5. SIMVASTATINE 40 MG TEVA, FILMOMHULDE TABLETTEN [Suspect]
     Active Substance: SIMVASTATIN
     Indication: PRODUCT USED FOR UNKNOWN INDICATION
     Dosage: 20 MILLIGRAM DAILY;
     Route: 065

REACTIONS (3)
  - Dyspepsia [Not Recovered/Not Resolved]
  - Stress [Not Recovered/Not Resolved]
  - Suicidal ideation [Not Recovered/Not Resolved]
